FAERS Safety Report 19785658 (Version 9)
Quarter: 2022Q1

REPORT INFORMATION
  Report Type: Spontaneous
  Country: US (occurrence: US)
  Receive Date: 20210903
  Receipt Date: 20220318
  Transmission Date: 20220424
  Serious: Yes (Other)
  Sender: FDA-Public Use
  Company Number: US-GLAXOSMITHKLINE-US2021181767

PATIENT
  Age: 62 Year
  Sex: Female

DRUGS (8)
  1. ZEJULA [Suspect]
     Active Substance: NIRAPARIB
     Indication: Fallopian tube cancer
     Dosage: 200 MG, QD
     Dates: start: 202101
  2. ZEJULA [Suspect]
     Active Substance: NIRAPARIB
     Indication: Recurrent cancer
     Dosage: 100 MG, QD
     Route: 048
     Dates: start: 20210819
  3. ZEJULA [Suspect]
     Active Substance: NIRAPARIB
     Dosage: 100 MG, QD
  4. ZEJULA [Suspect]
     Active Substance: NIRAPARIB
     Dosage: 100 MG, QD
     Route: 048
  5. ZEJULA [Suspect]
     Active Substance: NIRAPARIB
     Dosage: 100 MG, QD  (QAM)
     Dates: end: 20211220
  6. ZEJULA [Suspect]
     Active Substance: NIRAPARIB
     Dosage: UNK (EVERY OTHER DAY)
     Dates: start: 202201
  7. ZEJULA [Suspect]
     Active Substance: NIRAPARIB
     Dosage: 100 MG, QOD
     Dates: start: 20220102
  8. ZEJULA [Suspect]
     Active Substance: NIRAPARIB
     Dosage: 100 MG, QD

REACTIONS (23)
  - Renal injury [Unknown]
  - Renal function test abnormal [Unknown]
  - Renal impairment [Unknown]
  - Nausea [Not Recovered/Not Resolved]
  - Pain [Unknown]
  - Fatigue [Not Recovered/Not Resolved]
  - Blood glucose increased [Unknown]
  - Platelet count decreased [Not Recovered/Not Resolved]
  - Insomnia [Recovered/Resolved]
  - Blood pressure increased [Recovered/Resolved]
  - Heart rate increased [Not Recovered/Not Resolved]
  - Blood creatinine increased [Not Recovered/Not Resolved]
  - Chromaturia [Unknown]
  - Micturition disorder [Unknown]
  - Red blood cell count decreased [Not Recovered/Not Resolved]
  - Glomerular filtration rate decreased [Not Recovered/Not Resolved]
  - Palpitations [Not Recovered/Not Resolved]
  - White blood cell count decreased [Unknown]
  - Full blood count abnormal [Unknown]
  - Malaise [Recovering/Resolving]
  - Neutrophil count decreased [Unknown]
  - Dyspnoea [Unknown]
  - Inappropriate schedule of product administration [Unknown]

NARRATIVE: CASE EVENT DATE: 20220102
